FAERS Safety Report 12742237 (Version 1)
Quarter: 2016Q3

REPORT INFORMATION
  Report Type: Spontaneous
  Country: DE (occurrence: DE)
  Receive Date: 20160914
  Receipt Date: 20160914
  Transmission Date: 20161109
  Serious: Yes (Hospitalization)
  Sender: FDA-Public Use
  Company Number: DE-ROCHE-1827096

PATIENT
  Sex: Male

DRUGS (1)
  1. ATEZOLIZUMAB [Suspect]
     Active Substance: ATEZOLIZUMAB
     Indication: BLADDER TRANSITIONAL CELL CARCINOMA METASTATIC
     Route: 042
     Dates: start: 201608

REACTIONS (4)
  - Speech disorder [Recovering/Resolving]
  - Immobile [Recovering/Resolving]
  - Gastroenteritis [Unknown]
  - Pyrexia [Recovering/Resolving]

NARRATIVE: CASE EVENT DATE: 201608
